FAERS Safety Report 7223313 (Version 2)
Quarter: 2014Q2

REPORT INFORMATION
  Report Type: Report from Study
  Country: AU (occurrence: AU)
  Receive Date: 20091218
  Receipt Date: 20140403
  Transmission Date: 20141212
  Serious: Yes (Hospitalization)
  Sender: FDA-Public Use
  Company Number: AU-JNJFOC-20090602149

PATIENT
  Age: 29 Year
  Sex: Female
  Weight: 106 kg

DRUGS (9)
  1. HALOPERIDOL [Suspect]
     Indication: PSYCHOTIC DISORDER
     Route: 048
  2. HALOPERIDOL [Suspect]
     Indication: PSYCHOTIC DISORDER
     Dosage: 7.5 TO 12.5 MG DAILY
     Route: 048
  3. HALOPERIDOL [Suspect]
     Indication: PSYCHOTIC DISORDER
     Dosage: 7.5 TO 12.5 MG DAILY
     Route: 048
  4. HALOPERIDOL [Suspect]
     Indication: PSYCHOTIC DISORDER
     Route: 048
  5. EFFEXOR [Interacting]
     Indication: ANTIDEPRESSANT THERAPY
     Route: 048
  6. ZOLOFT [Interacting]
     Indication: ANTIDEPRESSANT THERAPY
  7. QUETIAPINE [Interacting]
     Indication: PROPHYLAXIS
     Route: 048
  8. FOLIC ACID [Concomitant]
     Indication: PROPHYLAXIS
     Route: 048
  9. ELEVIT [Concomitant]
     Indication: VITAMIN SUPPLEMENTATION

REACTIONS (7)
  - Postpartum depression [Recovered/Resolved]
  - Drug interaction [Unknown]
  - Psychotic disorder [Unknown]
  - Hyperemesis gravidarum [Recovered/Resolved]
  - Exposure during pregnancy [Recovered/Resolved]
  - Urinary tract infection [Recovered/Resolved]
  - Weight decreased [Unknown]
